FAERS Safety Report 17807526 (Version 3)
Quarter: 2021Q2

REPORT INFORMATION
  Report Type: Spontaneous
  Country: US (occurrence: US)
  Receive Date: 20200520
  Receipt Date: 20210409
  Transmission Date: 20210716
  Serious: No
  Sender: FDA-Public Use
  Company Number: US-ASTRAZENECA-2020SE64089

PATIENT
  Sex: Male
  Weight: 90.7 kg

DRUGS (2)
  1. SYMBICORT [Suspect]
     Active Substance: BUDESONIDE\FORMOTEROL FUMARATE DIHYDRATE
     Indication: ASTHMA
     Dosage: 160MCG/4.5MCG/INHALATION,BID
     Route: 055
     Dates: start: 2017
  2. ALBUTEROL. [Concomitant]
     Active Substance: ALBUTEROL
     Indication: DYSPNOEA
     Dosage: AS REQUIRED

REACTIONS (7)
  - Intentional device misuse [Unknown]
  - Dyspnoea [Unknown]
  - Device use issue [Unknown]
  - Drug ineffective [Unknown]
  - Product use issue [Unknown]
  - Weight decreased [Unknown]
  - Drug delivery system issue [Unknown]
